FAERS Safety Report 4765386-7 (Version None)
Quarter: 2005Q3

REPORT INFORMATION
  Report Type: 
  Country: None (occurrence: None)
  Receive Date: 20050908
  Receipt Date: 20050908
  Transmission Date: 20060218
  Serious: Yes (Hospitalization)
  Sender: FDA-Public Use
  Company Number: None

PATIENT
  Age: 70 Year
  Sex: Male
  Weight: 80.9217 kg

DRUGS (10)
  1. GM-CSF [Suspect]
     Indication: LYMPHOMA
     Dosage: 500 MCG SQ DAILY
     Route: 058
     Dates: start: 20050819, end: 20050826
  2. RITUXIMAB [Concomitant]
  3. CYCLOPHOSPHAMIDE [Concomitant]
  4. DOXORUBICIN [Concomitant]
  5. VINCRISTINE [Concomitant]
  6. PREDNISONE [Concomitant]
  7. ZOCOR [Concomitant]
  8. LEVAQUIN [Concomitant]
  9. ALLOPURINOL [Concomitant]
  10. PRED FORTE EYE GTTS [Concomitant]

REACTIONS (3)
  - FLANK PAIN [None]
  - THERAPY NON-RESPONDER [None]
  - VOMITING [None]
